FAERS Safety Report 24990233 (Version 1)
Quarter: 2025Q1

REPORT INFORMATION
  Report Type: Spontaneous
  Country: US (occurrence: US)
  Receive Date: 20250220
  Receipt Date: 20250220
  Transmission Date: 20250408
  Serious: No
  Sender: NOVARTIS
  Company Number: US-002147023-NVSC2025US028498

PATIENT
  Age: 77 Year
  Sex: Female

DRUGS (1)
  1. LEQVIO [Suspect]
     Active Substance: INCLISIRAN SODIUM
     Indication: Hyperlipidaemia
     Route: 058
     Dates: start: 20250130

REACTIONS (3)
  - Pain in extremity [Recovering/Resolving]
  - Vomiting [Recovering/Resolving]
  - Injection site reaction [Recovering/Resolving]

NARRATIVE: CASE EVENT DATE: 20250130
